FAERS Safety Report 6929418-X (Version None)
Quarter: 2010Q3

REPORT INFORMATION
  Report Type: 
  Country: None (occurrence: None)
  Receive Date: 20100818
  Receipt Date: 20100811
  Transmission Date: 20110219
  Serious: Yes (Hospitalization)
  Sender: FDA-Public Use
  Company Number: US-BIOGENIDEC-2010BI027252

PATIENT
  Age: 55 Year
  Sex: Female
  Weight: 81 kg

DRUGS (2)
  1. AVONEX [Suspect]
     Indication: MULTIPLE SCLEROSIS
     Route: 030
     Dates: start: 20000427, end: 20060626
  2. AVONEX [Suspect]
     Route: 030
     Dates: start: 20100601

REACTIONS (9)
  - ABASIA [None]
  - DIZZINESS [None]
  - EYE DISORDER [None]
  - FALL [None]
  - HYPOAESTHESIA [None]
  - LOSS OF CONSCIOUSNESS [None]
  - LUMBAR VERTEBRAL FRACTURE [None]
  - MULTIPLE SCLEROSIS RELAPSE [None]
  - UPPER LIMB FRACTURE [None]
